FAERS Safety Report 12740090 (Version 1)
Quarter: 2016Q3

REPORT INFORMATION
  Report Type: Spontaneous
  Country: JP (occurrence: JP)
  Receive Date: 20160913
  Receipt Date: 20160913
  Transmission Date: 20161109
  Serious: Yes (Other)
  Sender: FDA-Public Use
  Company Number: JP-GLAXOSMITHKLINE-JP2016GSK132798

PATIENT
  Age: 83 Year
  Sex: Male

DRUGS (12)
  1. VOLTAREN [Suspect]
     Active Substance: DICLOFENAC SODIUM
     Indication: PRODUCT USED FOR UNKNOWN INDICATION
     Route: 065
  2. TOUCHRON [Concomitant]
     Dosage: UNK
     Dates: start: 20160220
  3. TOUCHRON [Concomitant]
     Dosage: UNK
     Dates: start: 20160212, end: 20160317
  4. LYRICA [Suspect]
     Active Substance: PREGABALIN
     Dosage: 100 MG, QD
     Route: 048
     Dates: start: 20160220, end: 20160510
  5. LOXONIN [Concomitant]
     Active Substance: LOXOPROFEN SODIUM
     Dosage: UNK
     Dates: start: 20160130, end: 20160414
  6. SENNOSIDE A+B [Concomitant]
     Active Substance: SENNOSIDES A AND B
     Dosage: UNK
     Dates: start: 20160305, end: 20160331
  7. LYRICA [Suspect]
     Active Substance: PREGABALIN
     Indication: PRODUCT USED FOR UNKNOWN INDICATION
     Dosage: 50 MG, QD
     Route: 048
     Dates: start: 20160130, end: 20160219
  8. DICLOFENAC SODIUM. [Concomitant]
     Active Substance: DICLOFENAC SODIUM
     Dosage: UNK
     Dates: start: 20160305, end: 20160310
  9. TEPRENONE [Concomitant]
     Active Substance: TEPRENONE
     Dosage: UNK
     Dates: start: 20160130, end: 20160416
  10. FORTEO [Concomitant]
     Active Substance: TERIPARATIDE
     Dosage: UNK
     Dates: start: 20160215
  11. LYRICA [Suspect]
     Active Substance: PREGABALIN
     Dosage: 75 MG, QD
     Route: 048
     Dates: start: 20160511
  12. NEKSIUM [Concomitant]
     Dosage: UNK
     Dates: start: 20160212, end: 20160226

REACTIONS (3)
  - Large intestinal haemorrhage [Unknown]
  - Gastrointestinal haemorrhage [Unknown]
  - Melaena [Unknown]

NARRATIVE: CASE EVENT DATE: 201603
